FAERS Safety Report 5130023-9 (Version None)
Quarter: 2006Q4

REPORT INFORMATION
  Report Type: 
  Country: None (occurrence: None)
  Receive Date: 20061018
  Receipt Date: 20061009
  Transmission Date: 20070319
  Serious: Yes (Congenital Anomaly)
  Sender: FDA-Public Use
  Company Number: US-GILEAD-2006-0010471

PATIENT
  Sex: Male

DRUGS (2)
  1. TRUVADA [Suspect]
     Route: 064
     Dates: end: 20060925
  2. VIRAMUNE [Concomitant]
     Route: 064
     Dates: end: 20060925

REACTIONS (3)
  - CLEFT PALATE [None]
  - DRUG EXPOSURE DURING PREGNANCY [None]
  - PREGNANCY [None]
